FAERS Safety Report 6696883-5 (Version None)
Quarter: 2010Q2

REPORT INFORMATION
  Report Type: 
  Country: None (occurrence: None)
  Receive Date: 20100420
  Receipt Date: 20091201
  Transmission Date: 20101027
  Serious: Yes (Other)
  Sender: FDA-Public Use
  Company Number: SPV1-2009-02462

PATIENT
  Sex: 0

DRUGS (1)
  1. LIALDA [Suspect]
     Dosage: ORAL
     Route: 048

REACTIONS (1)
  - EOSINOPHILIC PNEUMONIA [None]
